FAERS Safety Report 5244393-4 (Version None)
Quarter: 2007Q1

REPORT INFORMATION
  Report Type: 
  Country: None (occurrence: None)
  Receive Date: 20070222
  Receipt Date: 20070212
  Transmission Date: 20070707
  Serious: Yes (Death)
  Sender: FDA-Public Use
  Company Number: KR-PFIZER INC-2007009541

PATIENT
  Sex: Male
  Weight: 67 kg

DRUGS (1)
  1. ZYVOX [Suspect]
     Indication: SOFT TISSUE INFECTION
     Route: 042
     Dates: start: 20050608, end: 20050611

REACTIONS (2)
  - PNEUMONIA [None]
  - PSEUDOMEMBRANOUS COLITIS [None]
